FAERS Safety Report 5941162-4 (Version None)
Quarter: 2008Q4

REPORT INFORMATION
  Report Type: 
  Country: None (occurrence: None)
  Receive Date: 20081104
  Receipt Date: 20081028
  Transmission Date: 20090506
  Serious: Yes (Hospitalization)
  Sender: FDA-Public Use
  Company Number: US-GILEAD-2008-0018739

PATIENT
  Sex: Female

DRUGS (19)
  1. LETAIRIS [Suspect]
     Route: 048
     Dates: start: 20080508
  2. PROGRAF [Suspect]
     Indication: IMMUNOSUPPRESSION
  3. OXYCODONE HCL [Concomitant]
  4. GABAPENTIN [Concomitant]
  5. PREDNISONE TAB [Concomitant]
  6. LIPITOR [Concomitant]
  7. TRAMADOL HCL [Concomitant]
  8. INDAPAMIDE [Concomitant]
  9. COUMADIN [Concomitant]
  10. NORVASC [Concomitant]
  11. DIOVAN [Concomitant]
  12. IMODIUM [Concomitant]
  13. PRILOSEC [Concomitant]
  14. LEVOTHYROXINE SODIUM [Concomitant]
  15. IMURAN [Concomitant]
  16. TYLENOL [Concomitant]
  17. ACYCLOVIR [Concomitant]
  18. VFEND [Concomitant]
  19. FUROSEMIDE [Concomitant]

REACTIONS (5)
  - ABDOMINAL PAIN [None]
  - ATRIAL FIBRILLATION [None]
  - DIARRHOEA [None]
  - PNEUMONIA [None]
  - RENAL FAILURE [None]
